FAERS Safety Report 7411360-1 (Version None)
Quarter: 2011Q2

REPORT INFORMATION
  Report Type: 
  Country: None (occurrence: None)
  Receive Date: 20110413
  Receipt Date: 20100625
  Transmission Date: 20111010
  Serious: Yes (Other)
  Sender: FDA-Public Use
  Company Number: US-BRISTOL-MYERS SQUIBB COMPANY-15166507

PATIENT
  Sex: Female

DRUGS (1)
  1. ERBITUX [Suspect]
     Dates: start: 20100601

REACTIONS (4)
  - ASTHENIA [None]
  - URTICARIA [None]
  - MALAISE [None]
  - SWELLING FACE [None]
